FAERS Safety Report 9603755 (Version 1)
Quarter: 2013Q4

REPORT INFORMATION
  Report Type: Report from Study
  Country: FI (occurrence: FI)
  Receive Date: 20131007
  Receipt Date: 20131007
  Transmission Date: 20140711
  Serious: Yes (Other)
  Sender: FDA-Public Use
  Company Number: PHHY2013FI111259

PATIENT
  Age: 3 Year
  Sex: Male

DRUGS (1)
  1. LEPONEX [Suspect]
     Dosage: 300-400 MG SINGLE DOSE

REACTIONS (3)
  - Accidental exposure to product by child [Unknown]
  - Disorientation [Unknown]
  - Somnolence [Unknown]
